FAERS Safety Report 6685113-6 (Version None)
Quarter: 2010Q2

REPORT INFORMATION
  Report Type: 
  Country: None (occurrence: None)
  Receive Date: 20100416
  Receipt Date: 20090723
  Transmission Date: 20101027
  Serious: No
  Sender: FDA-Public Use
  Company Number: US-BRISTOL-MYERS SQUIBB COMPANY-14715023

PATIENT
  Age: 35 Year
  Sex: Female

DRUGS (3)
  1. CARBOPLATIN [Suspect]
     Indication: BREAST CANCER
  2. DOCETAXEL [Suspect]
     Indication: BREAST CANCER
     Route: 042
  3. HERCEPTIN [Suspect]
     Indication: BREAST CANCER

REACTIONS (2)
  - NAIL BED TENDERNESS [None]
  - NAIL DISORDER [None]
